FAERS Safety Report 8370003-3 (Version None)
Quarter: 2012Q2

REPORT INFORMATION
  Report Type: 
  Country: None (occurrence: None)
  Receive Date: 20120518
  Receipt Date: 20120509
  Transmission Date: 20120825
  Serious: Yes (Hospitalization)
  Sender: FDA-Public Use
  Company Number: JP-VERTEX PHARMACEUTICALS INC.-AE-2012-004554

PATIENT
  Age: 73 Year
  Sex: Female

DRUGS (16)
  1. PEG-INTRON [Concomitant]
     Route: 051
     Dates: start: 20120223, end: 20120229
  2. ONEALFA [Concomitant]
     Route: 048
  3. PEG-INTRON [Concomitant]
     Indication: HEPATITIS C
     Route: 051
     Dates: start: 20120202, end: 20120209
  4. RIBAVIRIN [Concomitant]
     Route: 048
     Dates: start: 20120209, end: 20120306
  5. FAMOTIDINE [Concomitant]
     Route: 048
  6. PEG-INTRON [Concomitant]
     Route: 051
     Dates: start: 20120301, end: 20120306
  7. RIBAVIRIN [Concomitant]
     Route: 048
     Dates: start: 20120307, end: 20120313
  8. DIFLUNISAL [Concomitant]
     Route: 048
  9. BLODPRESS [Concomitant]
     Route: 048
  10. ZOLPIDEM [Concomitant]
  11. RIBAVIRIN [Concomitant]
     Indication: HEPATITIS C
     Route: 048
     Dates: start: 20120202, end: 20120208
  12. DOMPERIDONE [Concomitant]
     Route: 048
     Dates: start: 20120215
  13. TELAVIC (TELAPREVIR) [Suspect]
     Indication: HEPATITIS C
     Route: 048
     Dates: start: 20120202, end: 20120214
  14. GASMOTIN [Concomitant]
     Route: 048
     Dates: start: 20120214
  15. PEG-INTRON [Concomitant]
     Route: 051
     Dates: start: 20120307, end: 20120313
  16. ALLOPURINOL [Concomitant]
     Route: 048
     Dates: start: 20120206

REACTIONS (1)
  - DECREASED APPETITE [None]
